FAERS Safety Report 21154508 (Version 3)
Quarter: 2024Q3

REPORT INFORMATION
  Report Type: Report from Study
  Country: US (occurrence: US)
  Receive Date: 20220801
  Receipt Date: 20240731
  Transmission Date: 20241016
  Serious: Yes (Death, Hospitalization, Other)
  Sender: ROCHE
  Company Number: US-ROCHE-3147613

PATIENT
  Age: 84 Year
  Sex: Male

DRUGS (1)
  1. CELLCEPT [Suspect]
     Active Substance: MYCOPHENOLATE MOFETIL
     Indication: Renal transplant
     Route: 065

REACTIONS (5)
  - Cardiac failure [Unknown]
  - Urinary tract infection [Unknown]
  - Off label use [Unknown]
  - Prostatomegaly [Unknown]
  - Death [Fatal]

NARRATIVE: CASE EVENT DATE: 20240720
